FAERS Safety Report 23526459 (Version 1)
Quarter: 2024Q1

REPORT INFORMATION
  Report Type: Spontaneous
  Country: US (occurrence: None)
  Receive Date: 20240214
  Receipt Date: 20240214
  Transmission Date: 20240410
  Serious: Yes (Death)
  Sender: FDA-Public Use
  Company Number: None

PATIENT
  Age: 24 Year
  Sex: Male

DRUGS (8)
  1. AMBRISENTAN [Suspect]
     Active Substance: AMBRISENTAN
     Indication: Pulmonary arterial hypertension
     Dosage: 5MG QD ORAL?
     Route: 048
     Dates: start: 20220926, end: 20231121
  2. CINACALCET [Concomitant]
     Active Substance: CINACALCET
  3. METHOCARBAMOL [Concomitant]
     Active Substance: METHOCARBAMOL
  4. CARVEDILOL [Concomitant]
     Active Substance: CARVEDILOL
  5. HYDRALAZINE [Concomitant]
     Active Substance: HYDRALAZINE HYDROCHLORIDE
  6. ISOSORBIDE DINITRATE [Concomitant]
     Active Substance: ISOSORBIDE DINITRATE
  7. ENTRESTO [Concomitant]
     Active Substance: SACUBITRIL\VALSARTAN
  8. RENVELA [Concomitant]
     Active Substance: SEVELAMER CARBONATE

REACTIONS (1)
  - Gun shot wound [None]

NARRATIVE: CASE EVENT DATE: 20231121
